FAERS Safety Report 7472529-3 (Version None)
Quarter: 2011Q2

REPORT INFORMATION
  Report Type: 
  Country: None (occurrence: None)
  Receive Date: 20110502
  Receipt Date: 20110422
  Transmission Date: 20111010
  Serious: Yes (Other)
  Sender: FDA-Public Use
  Company Number: DSA_45483-2011

PATIENT
  Sex: Female

DRUGS (1)
  1. WELLBUTRIN [Suspect]
     Indication: DEPRESSION
     Dosage: DF ORAL
     Route: 048

REACTIONS (4)
  - ASTHENIA [None]
  - WRONG TECHNIQUE IN DRUG USAGE PROCESS [None]
  - HALLUCINATION [None]
  - DIZZINESS [None]
